FAERS Safety Report 7401815-8 (Version None)
Quarter: 2011Q2

REPORT INFORMATION
  Report Type: 
  Country: None (occurrence: None)
  Receive Date: 20110408
  Receipt Date: 20110404
  Transmission Date: 20111010
  Serious: No
  Sender: FDA-Public Use
  Company Number: US-PFIZER INC-2011074346

PATIENT
  Age: 37 Year
  Sex: Female
  Weight: 85.3 kg

DRUGS (10)
  1. ASPIRIN [Suspect]
     Indication: CARDIAC FAILURE
     Dosage: 81 MG, 1X/DAY
     Route: 048
  2. ATIVAN [Suspect]
     Indication: MENTAL DISORDER
     Dosage: 2 TABLETS, SINGLE DOSE
     Route: 048
     Dates: start: 20110301, end: 20110301
  3. OXYCODONE AND ACETAMINOPHEN [Suspect]
     Indication: NEUROPATHY PERIPHERAL
     Dosage: 7.5/325MG 1X/DAY
     Route: 048
     Dates: start: 20110301
  4. NOVOLOG [Suspect]
     Indication: DIABETES MELLITUS
     Dosage: UNK, SLIDING SCALE
     Route: 058
     Dates: start: 20100101
  5. XANAX [Suspect]
     Indication: DEPRESSION
     Dosage: 0.5 MG, 1X/DAY, Q AM
     Route: 048
     Dates: start: 20110316
  6. SIMVASTATIN [Suspect]
     Indication: BLOOD CHOLESTEROL INCREASED
     Dosage: 1 TABLET, 1X/DAY
     Route: 048
     Dates: start: 20100101
  7. LEVEMIR [Suspect]
     Indication: DIABETES MELLITUS
     Dosage: 50 U, QPM
     Route: 058
     Dates: start: 20100101
  8. ZOLOFT [Suspect]
     Indication: DEPRESSION
     Dosage: UNK, 1X/DAY
     Route: 048
     Dates: start: 20100701
  9. AMBIEN [Suspect]
     Indication: INSOMNIA
     Dosage: 1 TABLET, QHS
     Route: 048
     Dates: start: 20100701
  10. KLONOPIN [Suspect]
     Indication: DEPRESSION
     Dosage: UNK
     Route: 048
     Dates: end: 20110316

REACTIONS (1)
  - DRUG SCREEN POSITIVE [None]
